FAERS Safety Report 5385243-5 (Version None)
Quarter: 2007Q3

REPORT INFORMATION
  Report Type: 
  Country: None (occurrence: None)
  Receive Date: 20070706
  Receipt Date: 20070706
  Transmission Date: 20080115
  Serious: No
  Sender: FDA-Public Use
  Company Number: None

PATIENT
  Age: 24 Year
  Sex: Male
  Weight: 77.1115 kg

DRUGS (1)
  1. LITHIUM CARBONATE [Suspect]
     Dosage: 600 MG BID PO
     Route: 048

REACTIONS (1)
  - DRUG LEVEL INCREASED [None]
